FAERS Safety Report 17846282 (Version 1)
Quarter: 2020Q2

REPORT INFORMATION
  Report Type: Report from Study
  Country: US (occurrence: US)
  Receive Date: 20200601
  Receipt Date: 20200601
  Transmission Date: 20200714
  Serious: Yes (Hospitalization)
  Sender: FDA-Public Use
  Company Number: US-PFIZER INC-2018095688

PATIENT
  Age: 70 Year
  Sex: Female

DRUGS (1)
  1. IBRANCE [Suspect]
     Active Substance: PALBOCICLIB
     Indication: BREAST CANCER FEMALE
     Dosage: 125 MG, DAILY
     Route: 048
     Dates: start: 20180119, end: 201912

REACTIONS (10)
  - Nasopharyngitis [Unknown]
  - Blood calcium decreased [Unknown]
  - Bronchitis [Unknown]
  - Alopecia [Recovering/Resolving]
  - Oral herpes [Unknown]
  - Cardiac arrest [Unknown]
  - Epistaxis [Unknown]
  - Fatigue [Not Recovered/Not Resolved]
  - Arthralgia [Not Recovered/Not Resolved]
  - White blood cell count decreased [Unknown]

NARRATIVE: CASE EVENT DATE: 2018
